FAERS Safety Report 5104581-4 (Version None)
Quarter: 2006Q3

REPORT INFORMATION
  Report Type: 
  Country: None (occurrence: None)
  Receive Date: 20060914
  Receipt Date: 20050928
  Transmission Date: 20061208
  Serious: No
  Sender: FDA-Public Use
  Company Number: US-BRISTOL-MYERS SQUIBB COMPANY-13124763

PATIENT
  Sex: Female

DRUGS (5)
  1. BUSPAR [Suspect]
  2. SEROQUEL [Concomitant]
  3. ZOLOFT [Concomitant]
  4. ORTHO TRI-CYCLEN [Concomitant]
  5. HYDROXYZINE [Concomitant]

REACTIONS (1)
  - DRUG SCREEN FALSE POSITIVE [None]
